FAERS Safety Report 9808461 (Version 1)
Quarter: 2014Q1

REPORT INFORMATION
  Report Type: Spontaneous
  Country: US (occurrence: US)
  Receive Date: 20140110
  Receipt Date: 20140110
  Transmission Date: 20141002
  Serious: Yes (Other)
  Sender: FDA-Public Use
  Company Number: US-GILEAD-2010-0032140

PATIENT
  Age: 66 Year
  Sex: Female

DRUGS (5)
  1. VIREAD [Suspect]
     Indication: HIV INFECTION
  2. MOTRIN [Concomitant]
  3. SUSTIVA [Concomitant]
  4. VIDEX [Concomitant]
  5. NORVASC [Concomitant]

REACTIONS (2)
  - Fanconi syndrome acquired [Unknown]
  - Creatinine renal clearance decreased [Unknown]
